FAERS Safety Report 5948949-2 (Version None)
Quarter: 2008Q4

REPORT INFORMATION
  Report Type: 
  Country: None (occurrence: None)
  Receive Date: 20081111
  Receipt Date: 20081030
  Transmission Date: 20090506
  Serious: Yes (Other)
  Sender: FDA-Public Use
  Company Number: JP-PFIZER INC-2008091952

PATIENT
  Age: 50 Year
  Sex: Female

DRUGS (3)
  1. ZITHROMAX [Suspect]
     Indication: PHARYNGITIS
     Route: 048
     Dates: start: 20081028, end: 20081028
  2. CLEMASTINE FUMARATE [Concomitant]
     Route: 048
     Dates: start: 20081028, end: 20081031
  3. LYSOZYME HYDROCHLORIDE [Concomitant]
     Route: 048
     Dates: start: 20081028, end: 20081031

REACTIONS (3)
  - LOSS OF CONSCIOUSNESS [None]
  - NAUSEA [None]
  - PYREXIA [None]
